FAERS Safety Report 5557598-X (Version None)
Quarter: 2007Q4

REPORT INFORMATION
  Report Type: 
  Country: None (occurrence: None)
  Receive Date: 20071214
  Receipt Date: 20071207
  Transmission Date: 20080405
  Serious: Yes (Other)
  Sender: FDA-Public Use
  Company Number: A0698877A

PATIENT
  Sex: Female

DRUGS (1)
  1. PAXIL CR [Suspect]
     Indication: DRUG USE FOR UNKNOWN INDICATION
     Dosage: 49.5MG PER DAY
     Route: 048

REACTIONS (7)
  - BALANCE DISORDER [None]
  - DRUG DEPENDENCE [None]
  - INSOMNIA [None]
  - MOOD ALTERED [None]
  - SEXUAL DYSFUNCTION [None]
  - THINKING ABNORMAL [None]
  - WEIGHT INCREASED [None]
